FAERS Safety Report 20759713 (Version 2)
Quarter: 2022Q2

REPORT INFORMATION
  Report Type: Other
  Country: US (occurrence: None)
  Receive Date: 20220427
  Receipt Date: 20220429
  Transmission Date: 20220721
  Serious: Yes (Death)
  Sender: FDA-Public Use
  Company Number: US-ROCHE-3085117

PATIENT
  Sex: Female

DRUGS (4)
  1. HERCEPTIN [Suspect]
     Active Substance: TRASTUZUMAB
     Indication: Pancreatic carcinoma
     Dosage: INFUSE 168MG INTRAVENOUSLY EVERY 2 WEEK(S)
     Route: 042
  2. OPDIVO [Concomitant]
     Active Substance: NIVOLUMAB
  3. ABRAXANE [Concomitant]
     Active Substance: PACLITAXEL
  4. GEMZAR [Concomitant]
     Active Substance: GEMCITABINE HYDROCHLORIDE

REACTIONS (2)
  - Death [Fatal]
  - Off label use [Unknown]
